FAERS Safety Report 9455393 (Version 1)
Quarter: 2013Q3

REPORT INFORMATION
  Report Type: Spontaneous
  Country: JP (occurrence: JP)
  Receive Date: 20130813
  Receipt Date: 20130813
  Transmission Date: 20140515
  Serious: Yes (Other)
  Sender: FDA-Public Use
  Company Number: PHHY2013JP086211

PATIENT
  Age: 65 Year
  Sex: Female

DRUGS (1)
  1. DIOVAN [Suspect]
     Route: 048
     Dates: end: 20130806

REACTIONS (2)
  - Cerebral haemorrhage [Unknown]
  - Rash macular [Unknown]
